FAERS Safety Report 6097412-X (Version None)
Quarter: 2009Q1

REPORT INFORMATION
  Report Type: 
  Country: None (occurrence: None)
  Receive Date: 20090227
  Receipt Date: 20080318
  Transmission Date: 20090719
  Serious: No
  Sender: FDA-Public Use
  Company Number: A0716191A

PATIENT
  Age: 45 Year
  Sex: Female

DRUGS (10)
  1. IMITREX [Suspect]
     Indication: MIGRAINE
     Dosage: 6MG AS REQUIRED
     Route: 058
     Dates: start: 20080219
  2. TYSABRI [Concomitant]
  3. LYRICA [Concomitant]
  4. ADEROXAL [Concomitant]
  5. LIDOCAINE [Concomitant]
     Route: 062
  6. ZOMIG [Concomitant]
  7. SOLU-MEDROL [Concomitant]
  8. ATIVAN [Concomitant]
  9. ELMIRON [Concomitant]
  10. BACLOFEN [Concomitant]

REACTIONS (4)
  - INJECTION SITE HAEMATOMA [None]
  - INJECTION SITE INDURATION [None]
  - INJECTION SITE IRRITATION [None]
  - PRODUCT QUALITY ISSUE [None]
